FAERS Safety Report 17450820 (Version 4)
Quarter: 2020Q2

REPORT INFORMATION
  Report Type: Spontaneous
  Country: US (occurrence: US)
  Receive Date: 20200224
  Receipt Date: 20200429
  Transmission Date: 20200713
  Serious: Yes (Hospitalization, Other)
  Sender: FDA-Public Use
  Company Number: US-BIOGEN-2020BI00842621

PATIENT
  Age: 52 Year
  Sex: Female

DRUGS (4)
  1. TECFIDERA [Suspect]
     Active Substance: DIMETHYL FUMARATE
     Indication: MULTIPLE SCLEROSIS
     Route: 048
     Dates: start: 20200214, end: 20200221
  2. TECFIDERA [Suspect]
     Active Substance: DIMETHYL FUMARATE
     Dosage: FOR TWO WEEKS
     Route: 048
     Dates: start: 20200215
  3. TECFIDERA [Suspect]
     Active Substance: DIMETHYL FUMARATE
     Route: 048
     Dates: start: 20200323, end: 20200323
  4. GABAPENTIN. [Suspect]
     Active Substance: GABAPENTIN
     Indication: PRODUCT USED FOR UNKNOWN INDICATION
     Route: 065

REACTIONS (23)
  - Muscle spasticity [Recovered/Resolved]
  - Belligerence [Recovered/Resolved]
  - Gait inability [Recovered/Resolved]
  - Multiple sclerosis relapse [Unknown]
  - Fatigue [Not Recovered/Not Resolved]
  - Tremor [Not Recovered/Not Resolved]
  - Cold sweat [Not Recovered/Not Resolved]
  - Confusional state [Recovered/Resolved]
  - Hepatic failure [Recovered/Resolved]
  - Somnolence [Unknown]
  - Cognitive disorder [Unknown]
  - Loss of control of legs [Recovered/Resolved]
  - Overdose [Recovered/Resolved]
  - Hot flush [Recovered/Resolved]
  - Pain [Unknown]
  - Urinary incontinence [Recovered/Resolved]
  - Agitation [Recovered/Resolved]
  - Liver disorder [Unknown]
  - Anal incontinence [Recovered/Resolved]
  - Multiple sclerosis [Unknown]
  - Transient aphasia [Recovered/Resolved]
  - Systemic lupus erythematosus [Unknown]
  - Pruritus [Recovered/Resolved]

NARRATIVE: CASE EVENT DATE: 202002
